FAERS Safety Report 5675379-3 (Version None)
Quarter: 2008Q1

REPORT INFORMATION
  Report Type: 
  Country: None (occurrence: None)
  Receive Date: 20080320
  Receipt Date: 20080306
  Transmission Date: 20080703
  Serious: Yes (Hospitalization)
  Sender: FDA-Public Use
  Company Number: AU-GENENTECH-257525

PATIENT
  Sex: Female

DRUGS (2)
  1. HERCEPTIN [Suspect]
     Indication: BREAST CANCER METASTATIC
     Dosage: 6 MG/KG, UNK
     Route: 042
     Dates: start: 20060515, end: 20080130
  2. HERCEPTIN [Suspect]
     Indication: METASTASES TO LIVER

REACTIONS (4)
  - IMMOBILE [None]
  - JOINT SWELLING [None]
  - PYREXIA [None]
  - RASH [None]
